FAERS Safety Report 16617284 (Version 1)
Quarter: 2019Q3

REPORT INFORMATION
  Report Type: Spontaneous
  Country: FR (occurrence: FR)
  Receive Date: 20190723
  Receipt Date: 20190723
  Transmission Date: 20191004
  Serious: Yes (Other)
  Sender: FDA-Public Use
  Company Number: FR-PFIZER INC-2019306043

PATIENT
  Age: 19 Year
  Sex: Male

DRUGS (5)
  1. LINEZOLID. [Suspect]
     Active Substance: LINEZOLID
     Indication: LYMPH NODE TUBERCULOSIS
     Dosage: 600 MG, ONCE A DAY
     Route: 048
     Dates: start: 201812
  2. SIRTURO [Suspect]
     Active Substance: BEDAQUILINE FUMARATE
     Indication: LYMPH NODE TUBERCULOSIS
     Dosage: 6 DF, WEEKLY
     Route: 048
     Dates: start: 201812
  3. MOXIFLOXACINE [Suspect]
     Active Substance: MOXIFLOXACIN
     Indication: LYMPH NODE TUBERCULOSIS
     Dosage: 400 MG, ONCE A DAY
     Route: 048
     Dates: start: 201812
  4. LAMPRENE [Suspect]
     Active Substance: CLOFAZIMINE
     Indication: LYMPH NODE TUBERCULOSIS
     Dosage: 1 DF, ONCE A DAY
     Route: 048
     Dates: start: 201812
  5. PIRILENE [Suspect]
     Active Substance: PYRAZINAMIDE
     Indication: LYMPH NODE TUBERCULOSIS
     Dosage: 3 DF, ONCE A DAY
     Route: 048
     Dates: start: 201812

REACTIONS (3)
  - Off label use [Unknown]
  - Product use in unapproved indication [Unknown]
  - Iridocyclitis [Not Recovered/Not Resolved]

NARRATIVE: CASE EVENT DATE: 201812
